FAERS Safety Report 5047922-9 (Version None)
Quarter: 2006Q3

REPORT INFORMATION
  Report Type: 
  Country: None (occurrence: None)
  Receive Date: 20060711
  Receipt Date: 20060705
  Transmission Date: 20061208
  Serious: Yes (Other)
  Sender: FDA-Public Use
  Company Number: GB-GLAXOSMITHKLINE-B0430176A

PATIENT

DRUGS (2)
  1. FLIXONASE [Suspect]
     Route: 045
  2. UNSPECIFIED INHALER [Concomitant]

REACTIONS (1)
  - ASTHMA [None]
